FAERS Safety Report 11516171 (Version 2)
Quarter: 2016Q1

REPORT INFORMATION
  Report Type: Report from Study
  Country: US (occurrence: US)
  Receive Date: 20150917
  Receipt Date: 20160217
  Transmission Date: 20160525
  Serious: No
  Sender: FDA-Public Use
  Company Number: US-AMGEN-USASP2015093140

PATIENT
  Age: 53 Year
  Sex: Female

DRUGS (1)
  1. ENBREL [Suspect]
     Active Substance: ETANERCEPT
     Indication: RHEUMATOID ARTHRITIS
     Dosage: 50 MG, QWK
     Route: 065
     Dates: start: 20150730

REACTIONS (5)
  - Injection site pain [Unknown]
  - Injection site extravasation [Unknown]
  - Device issue [Unknown]
  - Injection site erythema [Unknown]
  - Injury associated with device [Unknown]

NARRATIVE: CASE EVENT DATE: 2015
